FAERS Safety Report 6977378-8 (Version None)
Quarter: 2010Q3

REPORT INFORMATION
  Report Type: 
  Country: None (occurrence: None)
  Receive Date: 20100910
  Receipt Date: 20100831
  Transmission Date: 20110219
  Serious: Yes (Other)
  Sender: FDA-Public Use
  Company Number: PHHY2010TW57869

PATIENT
  Age: 63 Year
  Sex: Female

DRUGS (1)
  1. ZOLEDRONIC [Suspect]
     Indication: OSTEOPOROSIS POSTMENOPAUSAL
     Dosage: 5 MG/100 C.C. ONCE PER YEAR
     Route: 042
     Dates: start: 20100730

REACTIONS (4)
  - CHILLS [None]
  - HAEMORRHOIDS [None]
  - PYREXIA [None]
  - SWELLING [None]
